FAERS Safety Report 10166970 (Version 1)
Quarter: 2014Q2

REPORT INFORMATION
  Report Type: Spontaneous
  Country: US (occurrence: US)
  Receive Date: 20140512
  Receipt Date: 20140512
  Transmission Date: 20141212
  Serious: No
  Sender: FDA-Public Use
  Company Number: US-PFIZER INC-2014129672

PATIENT
  Age: 54 Year
  Sex: Male
  Weight: 97.5 kg

DRUGS (1)
  1. NEURONTIN [Suspect]
     Dosage: 800 MG, 4X/DAY

REACTIONS (2)
  - Tinnitus [Unknown]
  - Ear discomfort [Unknown]
